FAERS Safety Report 4786713-0 (Version None)
Quarter: 2005Q4

REPORT INFORMATION
  Report Type: 
  Country: None (occurrence: None)
  Receive Date: 20051003
  Receipt Date: 20051003
  Transmission Date: 20060501
  Serious: Yes (Death)
  Sender: FDA-Public Use
  Company Number: None

PATIENT
  Age: 68 Year
  Sex: Male
  Weight: 106 kg

DRUGS (1)
  1. ACTIVASE [Suspect]
     Indication: PULMONARY EMBOLISM
     Dosage: 100 MG ONE TIME DOSE IV DRIP
     Route: 041
     Dates: start: 20050926, end: 20050926

REACTIONS (6)
  - CEREBRAL HAEMORRHAGE [None]
  - HEADACHE [None]
  - LOSS OF CONSCIOUSNESS [None]
  - NAUSEA [None]
  - SUBDURAL HAEMATOMA [None]
  - VOMITING [None]
